FAERS Safety Report 4735507-0 (Version None)
Quarter: 2005Q3

REPORT INFORMATION
  Report Type: 
  Country: None (occurrence: None)
  Receive Date: 20050801
  Receipt Date: 20050801
  Transmission Date: 20060218
  Serious: Yes (Hospitalization)
  Sender: FDA-Public Use
  Company Number: None

PATIENT
  Age: 55 Year
  Sex: Male
  Weight: 80.2867 kg

DRUGS (2)
  1. CISPLATIN [Suspect]
     Indication: LUNG NEOPLASM MALIGNANT
     Dosage: 150 MG IV
     Route: 042
     Dates: start: 20050426
  2. ALIMTA [Suspect]
     Indication: LUNG NEOPLASM MALIGNANT
     Dosage: 1000 MG IV
     Route: 042
     Dates: start: 20050426

REACTIONS (4)
  - ASTHENIA [None]
  - HYPOMAGNESAEMIA [None]
  - LABORATORY TEST ABNORMAL [None]
  - RENAL FAILURE ACUTE [None]
